FAERS Safety Report 12429182 (Version 1)
Quarter: 2016Q2

REPORT INFORMATION
  Report Type: Spontaneous
  Country: CN (occurrence: CN)
  Receive Date: 20160602
  Receipt Date: 20160602
  Transmission Date: 20160815
  Serious: Yes (Other)
  Sender: FDA-Public Use
  Company Number: CN-ASTRAZENECA-2016SE32867

PATIENT
  Sex: Female

DRUGS (1)
  1. IRESSA [Suspect]
     Active Substance: GEFITINIB
     Indication: LUNG NEOPLASM MALIGNANT
     Route: 048

REACTIONS (7)
  - Pulmonary oedema [Unknown]
  - Metastases to bone [Unknown]
  - Disease progression [Unknown]
  - Haemoptysis [Unknown]
  - Nasopharyngitis [Recovered/Resolved]
  - Drug resistance [Unknown]
  - Cough [Recovering/Resolving]
